FAERS Safety Report 9103851 (Version 1)
Quarter: 2013Q1

REPORT INFORMATION
  Report Type: Spontaneous
  Country: US (occurrence: US)
  Receive Date: 20130219
  Receipt Date: 20130219
  Transmission Date: 20140127
  Serious: Yes (Other)
  Sender: FDA-Public Use
  Company Number: US-BAYER-2013-020215

PATIENT
  Age: 15 Year
  Sex: Female
  Weight: 77.1 kg

DRUGS (5)
  1. ALEVE CAPLET/TABLET,MIDOL EXTENDED RELIEF CAPLET [Suspect]
     Indication: HEADACHE
     Dosage: UNK
     Route: 048
  2. METHYLPHENIDATE [Concomitant]
  3. GUANFACINE [Concomitant]
  4. SEROQUEL [Concomitant]
  5. RISPERIDONE [Concomitant]

REACTIONS (3)
  - Overdose [None]
  - Expired drug administered [None]
  - Vomiting [None]
